FAERS Safety Report 4842470-0 (Version None)
Quarter: 2005Q4

REPORT INFORMATION
  Report Type: 
  Country: None (occurrence: None)
  Receive Date: 20051129
  Receipt Date: 20051110
  Transmission Date: 20060501
  Serious: Yes (Hospitalization)
  Sender: FDA-Public Use
  Company Number: US200511000067

PATIENT
  Age: 77 Year
  Sex: Female
  Weight: 72.6 kg

DRUGS (2)
  1. HUMALOG [Suspect]
     Indication: DIABETES MELLITUS
     Dosage: 23 U, 2/D
     Dates: start: 20010101
  2. HUMALOG [Suspect]
     Indication: DIABETES MELLITUS
     Dosage: 23 U, 2/D
     Dates: start: 20010101

REACTIONS (10)
  - BLOOD GLUCOSE INCREASED [None]
  - CARDIAC OPERATION [None]
  - CARDIOVASCULAR DISORDER [None]
  - HYPOAESTHESIA [None]
  - LIMB DISCOMFORT [None]
  - NEUROPATHY [None]
  - PAIN IN EXTREMITY [None]
  - PHARMACEUTICAL PRODUCT COMPLAINT [None]
  - VASCULAR BYPASS GRAFT [None]
  - VEIN DISORDER [None]
